FAERS Safety Report 12755189 (Version 2)
Quarter: 2016Q4

REPORT INFORMATION
  Report Type: Report from Study
  Country: FR (occurrence: FR)
  Receive Date: 20160916
  Receipt Date: 20161007
  Transmission Date: 20170207
  Serious: Yes (Hospitalization, Other)
  Sender: FDA-Public Use
  Company Number: FR-REGENERON PHARMACEUTICALS, INC.-2016-21565

PATIENT

DRUGS (26)
  1. EYLEA [Suspect]
     Active Substance: AFLIBERCEPT
     Dosage: 50 MCL, IN THE RIGHT EYE
     Dates: start: 20150223
  2. EYLEA [Suspect]
     Active Substance: AFLIBERCEPT
     Dosage: 50 MCL, IN THE RIGHT EYE
     Dates: start: 20150601
  3. EYLEA [Suspect]
     Active Substance: AFLIBERCEPT
     Dosage: 50 MCL, IN THE RIGHT EYE
     Dates: start: 20151214
  4. OXYBUPROCAINE [Concomitant]
     Active Substance: BENOXINATE
     Indication: LOCAL ANAESTHESIA
     Dosage: UNK
     Dates: start: 20140616, end: 20160125
  5. EYLEA [Suspect]
     Active Substance: AFLIBERCEPT
     Dosage: 50 MCL, IN THE RIGHT EYE
     Dates: start: 20151019
  6. CRESTOR [Concomitant]
     Active Substance: ROSUVASTATIN CALCIUM
     Indication: PRODUCT USED FOR UNKNOWN INDICATION
     Dosage: 5 MG, QD
     Dates: start: 2008
  7. EYLEA [Suspect]
     Active Substance: AFLIBERCEPT
     Indication: NEOVASCULAR AGE-RELATED MACULAR DEGENERATION
     Dosage: 50 MCL, IN THE RIGHT EYE
     Dates: start: 20140616
  8. EYLEA [Suspect]
     Active Substance: AFLIBERCEPT
     Dosage: 50 MCL, IN THE RIGHT EYE
     Dates: start: 20160905
  9. KARDEGIC [Concomitant]
     Active Substance: ASPIRIN LYSINE
     Indication: PRODUCT USED FOR UNKNOWN INDICATION
     Dosage: 75 MG, QD
     Dates: start: 2008, end: 20160827
  10. EYLEA [Suspect]
     Active Substance: AFLIBERCEPT
     Dosage: 50 MCL, IN THE RIGHT EYE
     Dates: start: 20141103
  11. EYLEA [Suspect]
     Active Substance: AFLIBERCEPT
     Dosage: 50 MCL, IN THE RIGHT EYE
     Dates: start: 20141215
  12. EYLEA [Suspect]
     Active Substance: AFLIBERCEPT
     Dosage: 50 MCL, IN THE RIGHT EYE
     Dates: start: 20150408
  13. ALTEIS [Concomitant]
     Active Substance: OLMESARTAN MEDOXOMIL
     Indication: PRODUCT USED FOR UNKNOWN INDICATION
     Dosage: 20 MG, QD
     Dates: start: 2008
  14. CORTISONE [Concomitant]
     Active Substance: CORTISONE\HYDROCORTISONE
     Indication: PRODUCT USED FOR UNKNOWN INDICATION
     Dosage: 80 MG, UNK
     Dates: start: 20160825, end: 20160827
  15. EYLEA [Suspect]
     Active Substance: AFLIBERCEPT
     Dosage: 50 MCL, IN THE RIGHT EYE
     Dates: start: 20140901
  16. IPERTEN [Concomitant]
     Active Substance: MANIDIPINE
     Indication: PRODUCT USED FOR UNKNOWN INDICATION
     Dosage: 10 MG, QD
     Dates: start: 2008
  17. EYLEA [Suspect]
     Active Substance: AFLIBERCEPT
     Dosage: 50 MCL, IN THE RIGHT EYE
     Dates: start: 20160316
  18. EYLEA [Suspect]
     Active Substance: AFLIBERCEPT
     Dosage: 50 MCL, IN THE RIGHT EYE
     Dates: start: 20140929
  19. EYLEA [Suspect]
     Active Substance: AFLIBERCEPT
     Dosage: 50 MCL, IN THE RIGHT EYE
     Dates: start: 20140728
  20. EYLEA [Suspect]
     Active Substance: AFLIBERCEPT
     Dosage: 50 MCL, IN THE RIGHT EYE
     Dates: start: 20150126
  21. EYLEA [Suspect]
     Active Substance: AFLIBERCEPT
     Dosage: 50 MCL, IN THE RIGHT EYE
     Dates: start: 20150715
  22. EYLEA [Suspect]
     Active Substance: AFLIBERCEPT
     Dosage: 50 MCL, IN THE RIGHT EYE
     Dates: start: 20160125
  23. SOLUPRED                           /00016201/ [Concomitant]
     Active Substance: PREDNISOLONE
     Indication: PRODUCT USED FOR UNKNOWN INDICATION
     Dosage: 60 MG, UNK
     Dates: start: 20160828
  24. OMEPRAZOLE. [Concomitant]
     Active Substance: OMEPRAZOLE
     Indication: PRODUCT USED FOR UNKNOWN INDICATION
     Dosage: 20 MG, UNK
     Dates: start: 20160828
  25. AZITHROMYCIN ANHYDROUS. [Concomitant]
     Active Substance: AZITHROMYCIN ANHYDROUS
     Indication: ANTIBIOTIC PROPHYLAXIS
     Dosage: UNK
     Dates: start: 20140616, end: 20160125
  26. NOVESINE [Concomitant]
     Indication: LOCAL ANAESTHESIA
     Dosage: UNK
     Dates: start: 20160316, end: 20160905

REACTIONS (1)
  - Thrombocytopenia [Recovered/Resolved]

NARRATIVE: CASE EVENT DATE: 20160825
